FAERS Safety Report 12555701 (Version 4)
Quarter: 2020Q3

REPORT INFORMATION
  Report Type: Spontaneous
  Country: US (occurrence: US)
  Receive Date: 20160714
  Receipt Date: 20200721
  Transmission Date: 20201102
  Serious: Yes (Hospitalization)
  Sender: FDA-Public Use
  Company Number: US-PFIZER INC-2016307821

PATIENT
  Age: 64 Year
  Sex: Female

DRUGS (1)
  1. ATORVASTATIN CALCIUM. [Suspect]
     Active Substance: ATORVASTATIN CALCIUM
     Dosage: 10 MG, 1X/DAY

REACTIONS (7)
  - Dyspepsia [Recovered/Resolved]
  - Gastrooesophageal reflux disease [Unknown]
  - Gastric disorder [Recovered/Resolved]
  - Flatulence [Recovered/Resolved]
  - Abdominal pain upper [Unknown]
  - Abdominal pain [Unknown]
  - Diarrhoea [Recovered/Resolved]
